FAERS Safety Report 9472909 (Version 2)
Quarter: 2013Q3

REPORT INFORMATION
  Report Type: Spontaneous
  Country: US (occurrence: US)
  Receive Date: 20130823
  Receipt Date: 20130823
  Transmission Date: 20140515
  Serious: Yes (Other)
  Sender: FDA-Public Use
  Company Number: US-BRISTOL-MYERS SQUIBB COMPANY-17217886

PATIENT
  Age: 65 Year
  Sex: 0

DRUGS (1)
  1. SPRYCEL [Suspect]
     Dosage: TABLETS

REACTIONS (2)
  - Malignant neoplasm progression [Unknown]
  - Malaise [Unknown]
